FAERS Safety Report 13572241 (Version 1)
Quarter: 2017Q2

REPORT INFORMATION
  Report Type: Spontaneous
  Country: US (occurrence: US)
  Receive Date: 20170523
  Receipt Date: 20170523
  Transmission Date: 20170830
  Serious: Yes (Hospitalization)
  Sender: FDA-Public Use
  Company Number: None

PATIENT
  Age: 64 Year
  Sex: Male

DRUGS (16)
  1. NORCO [Concomitant]
     Active Substance: ACETAMINOPHEN\HYDROCODONE BITARTRATE
  2. LEVOFLOXACIN. [Concomitant]
     Active Substance: LEVOFLOXACIN
  3. ALBUTEROL. [Concomitant]
     Active Substance: ALBUTEROL
  4. FENTANYL. [Concomitant]
     Active Substance: FENTANYL
  5. ENALAPRIL [Concomitant]
     Active Substance: ENALAPRIL
  6. ADCIRCA [Suspect]
     Active Substance: TADALAFIL
     Indication: PULMONARY ARTERIAL HYPERTENSION
     Route: 048
     Dates: start: 20130613
  7. SIMVASTATIN. [Concomitant]
     Active Substance: SIMVASTATIN
  8. TRICOR [Concomitant]
     Active Substance: FENOFIBRATE
  9. TYVASO [Concomitant]
     Active Substance: TREPROSTINIL
  10. ZOLPIDEM [Concomitant]
     Active Substance: ZOLPIDEM\ZOLPIDEM TARTRATE
  11. OSELTAMIVIR [Concomitant]
     Active Substance: OSELTAMIVIR
  12. PREDNISONE. [Concomitant]
     Active Substance: PREDNISONE
  13. TORSEMIDE. [Concomitant]
     Active Substance: TORSEMIDE
  14. SOFTELIX [Concomitant]
  15. ONETOUCH [Concomitant]
  16. TRACLEER [Concomitant]
     Active Substance: BOSENTAN

REACTIONS (1)
  - Influenza [None]
